FAERS Safety Report 12210461 (Version 1)
Quarter: 2016Q1

REPORT INFORMATION
  Report Type: Spontaneous
  Country: US (occurrence: None)
  Receive Date: 20160324
  Receipt Date: 20160324
  Transmission Date: 20160526
  Serious: No
  Sender: FDA-Public Use
  Company Number: None

PATIENT
  Age: 32 Year
  Sex: Female
  Weight: 68.49 kg

DRUGS (2)
  1. IBUPROFEN. [Concomitant]
     Active Substance: IBUPROFEN
  2. NATAZIA [Suspect]
     Active Substance: DIENOGEST\ESTRADIOL VALERATE
     Indication: CONTRACEPTION
     Dosage: 28 TABLETS  ONCE DAILY  TAKEN BY MOUTH
     Route: 048
     Dates: start: 20160124, end: 20160310

REACTIONS (3)
  - Skin disorder [None]
  - Haemorrhage [None]
  - Alopecia [None]

NARRATIVE: CASE EVENT DATE: 20160124
